FAERS Safety Report 24054742 (Version 3)
Quarter: 2024Q3

REPORT INFORMATION
  Report Type: Spontaneous
  Country: JP (occurrence: JP)
  Receive Date: 20240705
  Receipt Date: 20240925
  Transmission Date: 20241017
  Serious: Yes (Death, Hospitalization, Other)
  Sender: MERCK
  Company Number: JP-MSD-M2024-21379

PATIENT
  Age: 97 Year
  Sex: Male

DRUGS (4)
  1. LAGEVRIO [Suspect]
     Active Substance: MOLNUPIRAVIR
     Indication: COVID-19 treatment
     Dosage: 800 MILLIGRAM, BID
     Route: 048
     Dates: start: 20240603, end: 202406
  2. LIMAPROST [Concomitant]
     Active Substance: LIMAPROST
     Dosage: 5 MICROGRAM, TID
     Route: 048
     Dates: start: 20240404
  3. FEXOFENADINE HYDROCHLORIDE [Concomitant]
     Active Substance: FEXOFENADINE HYDROCHLORIDE
     Dosage: 60 MILLIGRAM, BID
     Route: 048
     Dates: start: 20240404
  4. CLOPIDOGREL BISULFATE [Concomitant]
     Active Substance: CLOPIDOGREL BISULFATE
     Dosage: 75 MILLIGRAM, QD
     Route: 048
     Dates: start: 20240404

REACTIONS (3)
  - Cardiac failure [Fatal]
  - Faeces discoloured [Recovered/Resolved]
  - Mucous stools [Recovered/Resolved]

NARRATIVE: CASE EVENT DATE: 20240604
